FAERS Safety Report 8459400-5 (Version None)
Quarter: 2012Q2

REPORT INFORMATION
  Report Type: 
  Country: None (occurrence: None)
  Receive Date: 20120622
  Receipt Date: 20120613
  Transmission Date: 20120825
  Serious: Yes (Hospitalization)
  Sender: FDA-Public Use
  Company Number: DE-ABBOTT-12P-062-0945607-03

PATIENT
  Sex: Female

DRUGS (19)
  1. OMEPRAZOLE [Concomitant]
     Indication: PROPHYLAXIS
  2. PENTASA [Concomitant]
     Indication: CROHN'S DISEASE
  3. TORSEMIDE [Concomitant]
     Indication: OEDEMA PERIPHERAL
     Dates: start: 20081111
  4. LOPERAMIDE [Concomitant]
     Indication: CROHN'S DISEASE
     Dates: start: 20090421
  5. VITAMIN B-12 [Concomitant]
     Indication: VITAMIN B12 DEFICIENCY
     Dates: start: 20090917
  6. PREDNISONE TAB [Concomitant]
     Dates: start: 20081112
  7. CALCIMAGON [Concomitant]
     Indication: PROPHYLAXIS
     Dates: start: 20081111
  8. INNOHEP [Concomitant]
     Indication: ANTICOAGULANT THERAPY
     Route: 058
     Dates: start: 20081210
  9. INNOHEP [Concomitant]
     Indication: THROMBOSIS PROPHYLAXIS
     Dates: start: 20081202
  10. HUMIRA [Suspect]
     Indication: CROHN'S DISEASE
     Route: 058
     Dates: start: 20080717, end: 20080717
  11. HUMIRA [Suspect]
     Route: 058
     Dates: end: 20101221
  12. FERINJECT [Concomitant]
     Indication: IRON DEFICIENCY
     Dates: start: 20090717
  13. OMEPRAZOLE [Concomitant]
     Indication: GASTRIC DISORDER
  14. PREDNISONE TAB [Concomitant]
     Dates: start: 20080702, end: 20080819
  15. METOCLOPRAMIDE [Concomitant]
     Indication: CROHN'S DISEASE
     Dates: start: 20080918
  16. HUMIRA [Suspect]
     Route: 058
  17. CHOLESTAGEL [Concomitant]
     Indication: CROHN'S DISEASE
     Dates: start: 20100913
  18. PREDNISONE TAB [Concomitant]
     Indication: CROHN'S DISEASE
     Dates: start: 20080702, end: 20080819
  19. TRAMADOL HCL [Concomitant]
     Indication: PAIN
     Dosage: 37.5 MG/325 MG
     Dates: start: 20090910

REACTIONS (1)
  - INCISIONAL HERNIA [None]
